FAERS Safety Report 11232332 (Version 4)
Quarter: 2016Q2

REPORT INFORMATION
  Report Type: Report from Study
  Country: US (occurrence: US)
  Receive Date: 20150701
  Receipt Date: 20160427
  Transmission Date: 20160815
  Serious: Yes (Hospitalization, Other)
  Sender: FDA-Public Use
  Company Number: US-EISAI MEDICAL RESEARCH-EC-2015-007105

PATIENT
  Age: 73 Year
  Sex: Female
  Weight: 81.6 kg

DRUGS (5)
  1. LENVIMA [Suspect]
     Active Substance: LENVATINIB
     Route: 048
     Dates: start: 20150807, end: 201509
  2. LENVIMA [Suspect]
     Active Substance: LENVATINIB
     Indication: THYROID CANCER
     Route: 048
     Dates: start: 20150504, end: 201506
  3. LENVIMA [Suspect]
     Active Substance: LENVATINIB
     Route: 048
     Dates: start: 201509, end: 2015
  4. LENVIMA [Suspect]
     Active Substance: LENVATINIB
     Route: 048
     Dates: start: 2015
  5. LENVIMA [Suspect]
     Active Substance: LENVATINIB
     Route: 048
     Dates: start: 20150613, end: 20150730

REACTIONS (12)
  - Haemoptysis [Recovered/Resolved]
  - Asthenia [Unknown]
  - Asthenia [Unknown]
  - Arthralgia [Unknown]
  - Fatigue [Unknown]
  - Breast pain [Unknown]
  - Diarrhoea [Unknown]
  - Decreased appetite [Unknown]
  - Vomiting [Unknown]
  - Myalgia [Unknown]
  - Hypertension [Unknown]
  - Drug dose omission [Recovered/Resolved]

NARRATIVE: CASE EVENT DATE: 201505
